FAERS Safety Report 18971652 (Version 2)
Quarter: 2021Q2

REPORT INFORMATION
  Report Type: Spontaneous
  Country: US (occurrence: US)
  Receive Date: 20210305
  Receipt Date: 20210602
  Transmission Date: 20210717
  Serious: Yes (Hospitalization, Other)
  Sender: FDA-Public Use
  Company Number: US-ALXN-A202102971

PATIENT
  Age: 21 Year
  Sex: Female

DRUGS (1)
  1. SOLIRIS [Suspect]
     Active Substance: ECULIZUMAB
     Indication: ATYPICAL HAEMOLYTIC URAEMIC SYNDROME
     Dosage: UNK
     Route: 042
     Dates: start: 201707, end: 201812

REACTIONS (5)
  - Pneumonia [Recovered/Resolved]
  - Renal pain [Unknown]
  - Anaphylactic reaction [Unknown]
  - Abdominal pain upper [Recovered/Resolved]
  - Renal atrophy [Unknown]
